FAERS Safety Report 9752729 (Version 1)
Quarter: 2013Q4

REPORT INFORMATION
  Report Type: Spontaneous
  Country: US (occurrence: None)
  Receive Date: 20131211
  Receipt Date: 20131211
  Transmission Date: 20140711
  Serious: Yes (Hospitalization, Other)
  Sender: FDA-Public Use
  Company Number: DAV-AE-MTX-13-64

PATIENT
  Age: 57 Year
  Sex: Female

DRUGS (6)
  1. METHOTREXATE [Suspect]
     Indication: VASCULITIS
     Route: 048
     Dates: start: 201303
  2. METOPROLOL [Concomitant]
  3. FOLIC ACID [Concomitant]
  4. ASPIRIN [Concomitant]
  5. VITAMIN D WITH CALCIUM [Suspect]
  6. PREDNISONE [Suspect]

REACTIONS (6)
  - Vision blurred [None]
  - Balance disorder [None]
  - Abasia [None]
  - Amnesia [None]
  - Cognitive disorder [None]
  - Speech disorder [None]
